FAERS Safety Report 6469282-9 (Version None)
Quarter: 2009Q4

REPORT INFORMATION
  Report Type: 
  Country: None (occurrence: None)
  Receive Date: 20091202
  Receipt Date: 20091202
  Transmission Date: 20100525
  Serious: Yes (Hospitalization)
  Sender: FDA-Public Use
  Company Number: None

PATIENT
  Age: 65 Year
  Sex: Male
  Weight: 170 kg

DRUGS (11)
  1. WARFARIN SODIUM [Suspect]
     Indication: ATRIAL FIBRILLATION
     Dosage: 5MG ALTERNATING WITH 7.5MG DAILY ORAL  CHRONIC
     Route: 048
  2. M.V.I. [Concomitant]
  3. FUROSEMIDE [Concomitant]
  4. ATENOLOL [Concomitant]
  5. DIGOXIN [Concomitant]
  6. ALLOPURINOL [Concomitant]
  7. SIMVASTATIN [Concomitant]
  8. REPAGLINIDE [Concomitant]
  9. ISDN [Concomitant]
  10. ASPIRIN [Concomitant]
  11. CLOPIDOGREL [Concomitant]

REACTIONS (5)
  - DRUG TOXICITY [None]
  - HAEMATURIA [None]
  - HAEMORRHAGE URINARY TRACT [None]
  - INTERNATIONAL NORMALISED RATIO INCREASED [None]
  - OCCULT BLOOD POSITIVE [None]
